FAERS Safety Report 8448175-1 (Version None)
Quarter: 2012Q2

REPORT INFORMATION
  Report Type: 
  Country: None (occurrence: None)
  Receive Date: 20120619
  Receipt Date: 20120612
  Transmission Date: 20120825
  Serious: No
  Sender: FDA-Public Use
  Company Number: US-ASTRAZENECA-2012SE39437

PATIENT
  Age: 56 Year
  Sex: Female

DRUGS (4)
  1. PROTONIX [Concomitant]
  2. NEXIUM [Suspect]
     Route: 048
  3. SYMBICORT [Suspect]
     Dosage: UNKNOWN
     Route: 055
  4. GAVISCON [Concomitant]

REACTIONS (3)
  - DYSPEPSIA [None]
  - DRUG DOSE OMISSION [None]
  - GASTROOESOPHAGEAL REFLUX DISEASE [None]
